FAERS Safety Report 17939425 (Version 1)
Quarter: 2020Q2

REPORT INFORMATION
  Report Type: Spontaneous
  Country: CN (occurrence: CN)
  Receive Date: 20200624
  Receipt Date: 20200624
  Transmission Date: 20200714
  Serious: Yes (Hospitalization, Disabling, Other)
  Sender: FDA-Public Use
  Company Number: CN-PFIZER INC-2020239995

PATIENT
  Age: 68 Year
  Sex: Male

DRUGS (8)
  1. SOLU-MEDROL [Suspect]
     Active Substance: METHYLPREDNISOLONE SODIUM SUCCINATE
     Indication: SKIN INFECTION
  2. SODIUM CHLORIDE. [Suspect]
     Active Substance: SODIUM CHLORIDE
     Indication: SKIN INFECTION
  3. SODIUM CHLORIDE. [Suspect]
     Active Substance: SODIUM CHLORIDE
     Indication: MYASTHENIA GRAVIS
  4. SOLU-MEDROL [Suspect]
     Active Substance: METHYLPREDNISOLONE SODIUM SUCCINATE
     Indication: MYASTHENIA GRAVIS
  5. SOLU-MEDROL [Suspect]
     Active Substance: METHYLPREDNISOLONE SODIUM SUCCINATE
     Indication: PNEUMONIA
     Dosage: 80 MG, 1X/DAY
     Route: 041
     Dates: start: 20200523, end: 20200604
  6. SODIUM CHLORIDE. [Suspect]
     Active Substance: SODIUM CHLORIDE
     Indication: PNEUMONIA
     Dosage: 100 ML, 1X/DAY
     Route: 041
     Dates: start: 20200523, end: 20200604
  7. SODIUM CHLORIDE. [Suspect]
     Active Substance: SODIUM CHLORIDE
     Indication: SEPSIS
  8. SOLU-MEDROL [Suspect]
     Active Substance: METHYLPREDNISOLONE SODIUM SUCCINATE
     Indication: SEPSIS

REACTIONS (2)
  - Upper gastrointestinal haemorrhage [Recovering/Resolving]
  - Haemoglobin decreased [Not Recovered/Not Resolved]

NARRATIVE: CASE EVENT DATE: 20200528
